FAERS Safety Report 23889370 (Version 3)
Quarter: 2024Q3

REPORT INFORMATION
  Report Type: Report from Study
  Country: CA (occurrence: CA)
  Receive Date: 20240523
  Receipt Date: 20240719
  Transmission Date: 20241016
  Serious: Yes (Death)
  Sender: ABBVIE
  Company Number: CA-ABBVIE-5770302

PATIENT
  Age: 56 Year
  Sex: Male
  Weight: 80 kg

DRUGS (5)
  1. SKYRIZI [Suspect]
     Active Substance: RISANKIZUMAB-RZAA
     Indication: Psoriasis
     Route: 058
     Dates: start: 20220614
  2. SKYRIZI [Suspect]
     Active Substance: RISANKIZUMAB-RZAA
     Route: 058
  3. SKYRIZI [Suspect]
     Active Substance: RISANKIZUMAB-RZAA
     Route: 058
  4. ACETAMINOPHEN [Concomitant]
     Active Substance: ACETAMINOPHEN
     Indication: Product used for unknown indication
     Route: 048
  5. PERINDOPRIL [Concomitant]
     Active Substance: PERINDOPRIL
     Indication: Hypertension
     Route: 048

REACTIONS (8)
  - Necrotising fasciitis [Fatal]
  - Dyspnoea [Unknown]
  - Cardiopulmonary failure [Fatal]
  - Hepatic failure [Fatal]
  - Beta haemolytic streptococcal infection [Fatal]
  - Sinus tachycardia [Unknown]
  - Renal failure [Fatal]
  - Streptococcal sepsis [Fatal]

NARRATIVE: CASE EVENT DATE: 20231201
